FAERS Safety Report 25449905 (Version 2)
Quarter: 2025Q3

REPORT INFORMATION
  Report Type: Spontaneous
  Country: EU (occurrence: EU)
  Receive Date: 20250618
  Receipt Date: 20250915
  Transmission Date: 20251021
  Serious: Yes (Hospitalization, Other)
  Sender: BRISTOL-MYERS SQUIBB COMPANY
  Company Number: EU-BRISTOL-MYERS SQUIBB COMPANY-2025-085562

PATIENT
  Age: 81 Year
  Sex: Female

DRUGS (5)
  1. NIVOLUMAB [Suspect]
     Active Substance: NIVOLUMAB
     Indication: Squamous cell carcinoma of lung
  2. NELVUTAMIG [Suspect]
     Active Substance: NELVUTAMIG
     Indication: Squamous cell carcinoma of lung
  3. CARBOPLATIN [Suspect]
     Active Substance: CARBOPLATIN
     Indication: Squamous cell carcinoma of lung
  4. PACLITAXEL [Suspect]
     Active Substance: PACLITAXEL
     Indication: Squamous cell carcinoma of lung
  5. HYDROCORTISONE [Concomitant]
     Active Substance: HYDROCORTISONE
     Indication: Product used for unknown indication

REACTIONS (6)
  - Hypothyroidism [Recovering/Resolving]
  - General physical condition abnormal [Recovering/Resolving]
  - Dysarthria [Recovering/Resolving]
  - Renal impairment [Recovering/Resolving]
  - Electrolyte imbalance [Recovering/Resolving]
  - Hypophysitis [Recovering/Resolving]
